FAERS Safety Report 16462272 (Version 1)
Quarter: 2019Q2

REPORT INFORMATION
  Report Type: Spontaneous
  Country: US (occurrence: US)
  Receive Date: 20190511
  Receipt Date: 20190511
  Transmission Date: 20190711
  Serious: No
  Sender: FDA-Public Use
  Company Number: None

PATIENT
  Sex: Male

DRUGS (1)
  1. AFINITOR [Suspect]
     Active Substance: EVEROLIMUS
     Indication: RENAL CANCER
     Dosage: ?          OTHER DOSE:2.5MG;?
     Route: 048
     Dates: start: 20180808

REACTIONS (3)
  - Fatigue [None]
  - Bone pain [None]
  - Hypertension [None]
